FAERS Safety Report 23268941 (Version 2)
Quarter: 2024Q1

REPORT INFORMATION
  Report Type: Report from Study
  Country: UY (occurrence: UY)
  Receive Date: 20231206
  Receipt Date: 20240115
  Transmission Date: 20240410
  Serious: Yes (Hospitalization, Other)
  Sender: FDA-Public Use
  Company Number: UY-ABBVIE-5521508

PATIENT
  Sex: Female

DRUGS (1)
  1. RINVOQ [Suspect]
     Active Substance: UPADACITINIB
     Indication: Rheumatoid arthritis
     Dosage: LAST ADMIN DATE : 2023?FORM STRENGTH: 15 MILLIGRAM
     Route: 048
     Dates: start: 20230427

REACTIONS (2)
  - Cholelithiasis [Unknown]
  - Drug-induced liver injury [Not Recovered/Not Resolved]

NARRATIVE: CASE EVENT DATE: 20230101
